FAERS Safety Report 16164832 (Version 1)
Quarter: 2019Q2

REPORT INFORMATION
  Report Type: Spontaneous
  Country: US (occurrence: US)
  Receive Date: 20190405
  Receipt Date: 20190405
  Transmission Date: 20190711
  Serious: No
  Sender: FDA-Public Use
  Company Number: US-SA-2019SA094917

PATIENT
  Age: 61 Year
  Sex: Female

DRUGS (1)
  1. AUBAGIO [Suspect]
     Active Substance: TERIFLUNOMIDE
     Indication: OSTEOARTHRITIS
     Dosage: 14 MG, QD
     Route: 048
     Dates: start: 20180921

REACTIONS (2)
  - Product use in unapproved indication [Unknown]
  - Alopecia [Unknown]
